FAERS Safety Report 17892090 (Version 1)
Quarter: 2020Q2

REPORT INFORMATION
  Report Type: Spontaneous
  Country: US (occurrence: US)
  Receive Date: 20200612
  Receipt Date: 20200612
  Transmission Date: 20200714
  Serious: Yes (Other)
  Sender: FDA-Public Use
  Company Number: US-TEVA-2020-US-1246317

PATIENT
  Sex: Female

DRUGS (1)
  1. COPAXONE [Suspect]
     Active Substance: GLATIRAMER ACETATE
     Dosage: FORM STRENGTH: UNKNOWN
     Route: 065

REACTIONS (7)
  - Fat tissue decreased [Unknown]
  - Drop attacks [Unknown]
  - Fall [Unknown]
  - Muscle injury [Unknown]
  - Loss of control of legs [Unknown]
  - Herpes zoster [Unknown]
  - Magnetic resonance imaging abnormal [Unknown]
